FAERS Safety Report 5040300-8 (Version None)
Quarter: 2006Q2

REPORT INFORMATION
  Report Type: 
  Country: None (occurrence: None)
  Receive Date: 20060630
  Receipt Date: 20060406
  Transmission Date: 20061013
  Serious: Yes (Life-Threatening)
  Sender: FDA-Public Use
  Company Number: US-BRISTOL-MYERS SQUIBB COMPANY-13340146

PATIENT
  Age: 47 Year
  Sex: Male

DRUGS (4)
  1. ORENCIA [Suspect]
     Indication: RHEUMATOID ARTHRITIS
     Route: 042
     Dates: start: 20060406, end: 20060406
  2. PREDNISONE [Concomitant]
  3. BONIVA [Concomitant]
     Dosage: DOSAGE FORM = 150
  4. OXYCONTIN [Concomitant]

REACTIONS (1)
  - ANAPHYLACTIC REACTION [None]
